FAERS Safety Report 6982544-1 (Version None)
Quarter: 2010Q3

REPORT INFORMATION
  Report Type: 
  Country: None (occurrence: None)
  Receive Date: 20100914
  Receipt Date: 20100220
  Transmission Date: 20110219
  Serious: Yes (Other)
  Sender: FDA-Public Use
  Company Number: US-PFIZER INC-2010022363

PATIENT
  Sex: Female

DRUGS (3)
  1. LYRICA [Suspect]
     Indication: FIBROMYALGIA
     Dosage: 150 MG, 3X/DAY
     Route: 048
  2. LYRICA [Suspect]
     Indication: DIABETIC NEUROPATHY
     Dosage: 50 MG, 2X/DAY
  3. LYRICA [Suspect]
     Dosage: 100 MG, 3X/DAY

REACTIONS (1)
  - PLATELET COUNT DECREASED [None]
